FAERS Safety Report 10446773 (Version 2)
Quarter: 2014Q4

REPORT INFORMATION
  Report Type: Spontaneous
  Country: GB (occurrence: GB)
  Receive Date: 20140911
  Receipt Date: 20141022
  Transmission Date: 20150528
  Serious: Yes (Hospitalization)
  Sender: FDA-Public Use
  Company Number: GB-JNJFOC-20140906921

PATIENT
  Age: 30 Year
  Sex: Male

DRUGS (6)
  1. SALOFALK [Concomitant]
     Active Substance: MESALAMINE
     Route: 065
  2. 6 MERCAPTOPURINE [Concomitant]
     Active Substance: MERCAPTOPURINE
     Route: 065
  3. PENTASA [Concomitant]
     Active Substance: MESALAMINE
     Route: 048
  4. INFLIXIMAB, RECOMBINANT [Suspect]
     Active Substance: INFLIXIMAB
     Indication: COLITIS ULCERATIVE
     Route: 042
     Dates: start: 20140903
  5. PENTASA [Concomitant]
     Active Substance: MESALAMINE
     Route: 065
  6. SALOFALK [Concomitant]
     Active Substance: MESALAMINE
     Route: 048

REACTIONS (4)
  - Loss of consciousness [Unknown]
  - Infusion related reaction [Unknown]
  - Hypotension [Unknown]
  - Hyperhidrosis [Unknown]

NARRATIVE: CASE EVENT DATE: 20140903
